FAERS Safety Report 12331951 (Version 2)
Quarter: 2016Q2

REPORT INFORMATION
  Report Type: Spontaneous
  Country: US (occurrence: US)
  Receive Date: 20160504
  Receipt Date: 20160509
  Transmission Date: 20160815
  Serious: Yes (Other)
  Sender: FDA-Public Use
  Company Number: US-PFIZER INC-2016221605

PATIENT
  Age: 66 Year
  Sex: Female
  Weight: 68.4 kg

DRUGS (5)
  1. LYRICA [Suspect]
     Active Substance: PREGABALIN
     Indication: NERVE COMPRESSION
     Dosage: 50MG (ONE DOSE, CAPSULE)
     Dates: start: 20160415
  2. LYRICA [Suspect]
     Active Substance: PREGABALIN
     Indication: NEURALGIA
     Dosage: 50MG CAPSULE ONE TIME
     Dates: start: 20160415, end: 20160415
  3. LYRICA [Suspect]
     Active Substance: PREGABALIN
     Indication: SPINAL COLUMN STENOSIS
  4. LISINOPRIL. [Concomitant]
     Active Substance: LISINOPRIL
     Indication: BLOOD PRESSURE ABNORMAL
     Dosage: 5MG TABLET ONCE A DAY
  5. AMLODIPINE [Concomitant]
     Active Substance: AMLODIPINE BESYLATE
     Indication: BLOOD PRESSURE MEASUREMENT
     Dosage: 10 MG, UNK

REACTIONS (11)
  - Disorientation [Recovered/Resolved]
  - Tremor [Recovered/Resolved]
  - Paraesthesia [Unknown]
  - Mental impairment [Recovered/Resolved]
  - Pain [Unknown]
  - Feeling jittery [Unknown]
  - Circumstance or information capable of leading to medication error [Unknown]
  - Gait disturbance [Recovered/Resolved]
  - Peripheral swelling [Unknown]
  - Nervousness [Unknown]
  - Dizziness [Recovered/Resolved]

NARRATIVE: CASE EVENT DATE: 20160416
